FAERS Safety Report 6450976-6 (Version None)
Quarter: 2009Q4

REPORT INFORMATION
  Report Type: 
  Country: None (occurrence: None)
  Receive Date: 20091123
  Receipt Date: 20091116
  Transmission Date: 20100525
  Serious: Yes (Other)
  Sender: FDA-Public Use
  Company Number: B0576468A

PATIENT
  Sex: Female
  Weight: 147 kg

DRUGS (20)
  1. REQUIP [Suspect]
     Indication: PARKINSON'S DISEASE
     Route: 048
     Dates: start: 20080411, end: 20090715
  2. SYMMETREL [Suspect]
     Indication: PARKINSON'S DISEASE
     Dosage: 50MG TWICE PER DAY
     Route: 048
     Dates: start: 20070501
  3. SYMMETREL [Suspect]
     Dosage: 100MG PER DAY
     Route: 048
     Dates: end: 20090605
  4. CARBIDOPA AND LEVODOPA [Concomitant]
     Indication: PARKINSON'S DISEASE
     Route: 048
     Dates: start: 20090612
  5. SEROQUEL [Concomitant]
     Indication: HALLUCINATION
     Dosage: 50MG PER DAY
     Route: 048
     Dates: start: 20090626, end: 20090707
  6. SEROQUEL [Concomitant]
     Route: 048
     Dates: start: 20090708, end: 20090714
  7. PRAMIPEXOLE DIHYDROCHLORIDE [Concomitant]
     Indication: PARKINSON'S DISEASE
     Dosage: .25MG PER DAY
     Route: 048
     Dates: start: 20071031, end: 20080214
  8. PRAMIPEXOLE DIHYDROCHLORIDE [Concomitant]
     Dosage: .375MG PER DAY
     Route: 048
     Dates: start: 20080215, end: 20080411
  9. TIZANIDINE HCL [Concomitant]
     Route: 048
  10. MEILAX [Concomitant]
     Route: 048
  11. AMOBAN [Concomitant]
     Route: 048
  12. METHYCOBAL [Concomitant]
     Route: 065
  13. MUCOSTA [Concomitant]
     Route: 048
  14. LOXOPROFEN SODIUM [Concomitant]
     Route: 065
  15. MIYA BM [Concomitant]
     Route: 048
  16. MAGNESIUM OXIDE [Concomitant]
     Route: 048
  17. ONEALFA [Concomitant]
     Route: 048
  18. VOLTAREN [Concomitant]
     Route: 061
  19. UNKNOWN [Concomitant]
     Route: 062
  20. CARBIDOPA AND LEVODOPA [Concomitant]
     Route: 065
     Dates: start: 20090612

REACTIONS (4)
  - BLOOD CREATINE PHOSPHOKINASE INCREASED [None]
  - HALLUCINATION [None]
  - HALLUCINATION, AUDITORY [None]
  - HALLUCINATION, VISUAL [None]
